FAERS Safety Report 7114391-4 (Version None)
Quarter: 2010Q4

REPORT INFORMATION
  Report Type: 
  Country: None (occurrence: None)
  Receive Date: 20101119
  Receipt Date: 20101109
  Transmission Date: 20110411
  Serious: Yes (Hospitalization, Other)
  Sender: FDA-Public Use
  Company Number: US-PFIZER INC-2010148081

PATIENT
  Sex: Male

DRUGS (13)
  1. DILANTIN-125 [Suspect]
     Indication: CONVULSION
     Dosage: UNK
     Dates: start: 20100701
  2. REVLIMID [Suspect]
     Indication: MULTIPLE MYELOMA
     Dosage: 25 MG, 1X/DAY FOR 21 DAYS
     Route: 048
     Dates: start: 20100625
  3. DILTIAZEM [Concomitant]
     Dosage: UNK
  4. LOVENOX [Concomitant]
     Dosage: UNK
  5. COUMADIN [Concomitant]
     Dosage: UNK
  6. GLIPIZIDE [Concomitant]
     Dosage: 2.5 MG, 1X/DAY
  7. METFORMIN [Concomitant]
     Dosage: 500; TWICE DAILY
  8. CEFTIN [Concomitant]
     Dosage: 250; TWICE DAILY
  9. LEVOTHYROXINE [Concomitant]
     Dosage: 0.075 DAILY
  10. FIBERCON [Concomitant]
     Dosage: UNK
  11. PAXIL [Concomitant]
     Dosage: 20 MG, 1X/DAY
  12. VALPROIC ACID [Concomitant]
     Indication: CONVULSION
     Dosage: UNK
     Dates: start: 20100801
  13. TRILEPTAL [Concomitant]
     Dosage: 300 MG, 2X/DAY
     Route: 048
     Dates: start: 20100801

REACTIONS (9)
  - ATRIAL FIBRILLATION [None]
  - HAEMATURIA [None]
  - HYPERCALCAEMIA [None]
  - HYPOKALAEMIA [None]
  - ISCHAEMIC STROKE [None]
  - MENTAL STATUS CHANGES [None]
  - PSEUDOMONAL SEPSIS [None]
  - RASH [None]
  - SYNCOPE [None]
